FAERS Safety Report 5215552-1 (Version None)
Quarter: 2007Q1

REPORT INFORMATION
  Report Type: 
  Country: None (occurrence: None)
  Receive Date: 20070117
  Receipt Date: 20070109
  Transmission Date: 20070707
  Serious: Yes (Life-Threatening)
  Sender: FDA-Public Use
  Company Number: 2006SP005317

PATIENT
  Age: 62 Year
  Sex: Male
  Weight: 78 kg

DRUGS (7)
  1. TEMODAL [Suspect]
     Indication: GLIOMA
     Dosage: 150 MG/M2; QD; PO
     Route: 048
     Dates: start: 20061005, end: 20061009
  2. NIDRAN [Concomitant]
  3. INTERFERON BETA [Concomitant]
  4. ZANTAC [Concomitant]
  5. EXCEGRAN [Concomitant]
  6. BETAMETHASONE SODIUM PHOSPHATE [Concomitant]
  7. EBRANTIL [Concomitant]

REACTIONS (2)
  - PNEUMOCYSTIS JIROVECI PNEUMONIA [None]
  - PNEUMONIA CYTOMEGALOVIRAL [None]
